FAERS Safety Report 16156407 (Version 1)
Quarter: 2019Q2

REPORT INFORMATION
  Report Type: Spontaneous
  Country: ZA (occurrence: ZA)
  Receive Date: 20190404
  Receipt Date: 20190404
  Transmission Date: 20190711
  Serious: Yes (Death, Life-Threatening, Hospitalization, Other)
  Sender: FDA-Public Use
  Company Number: ZA-BION-007901

PATIENT
  Age: 36 Year
  Sex: Male

DRUGS (8)
  1. HALOPERIDOL. [Suspect]
     Active Substance: HALOPERIDOL
     Indication: MANIA
     Route: 048
  2. CLONAZEPAM. [Suspect]
     Active Substance: CLONAZEPAM
     Indication: MANIA
  3. PROMETHAZINE [Suspect]
     Active Substance: PROMETHAZINE\PROMETHAZINE HYDROCHLORIDE
     Indication: MANIA
  4. LITHIUM. [Suspect]
     Active Substance: LITHIUM
     Indication: MANIA
  5. LEVOTHYROXINE. [Suspect]
     Active Substance: LEVOTHYROXINE
     Indication: MANIA
  6. VALPROIC ACID. [Suspect]
     Active Substance: VALPROIC ACID
     Indication: MANIA
  7. CLOZAPINE. [Suspect]
     Active Substance: CLOZAPINE
     Indication: MANIA
     Dosage: ALSO RECEIVED 75 MG AT MID-DAY
  8. SULPIRIDE [Suspect]
     Active Substance: SULPIRIDE
     Indication: MANIA

REACTIONS (4)
  - Cardiopulmonary failure [Fatal]
  - Neuroleptic malignant syndrome [Recovering/Resolving]
  - Pneumonia [Unknown]
  - Sepsis [Unknown]
